FAERS Safety Report 11081782 (Version 1)
Quarter: 2015Q2

REPORT INFORMATION
  Report Type: Report from Study
  Country: US (occurrence: US)
  Receive Date: 20150501
  Receipt Date: 20150501
  Transmission Date: 20150821
  Serious: Yes (Other)
  Sender: FDA-Public Use
  Company Number: US-SA-2015SA056516

PATIENT
  Sex: Female

DRUGS (2)
  1. SOLOSTAR U300 [Concomitant]
  2. LANTUS [Suspect]
     Active Substance: INSULIN GLARGINE
     Indication: DIABETES MELLITUS
     Route: 065

REACTIONS (4)
  - Hunger [Unknown]
  - Renal failure [Unknown]
  - Arthritis [Unknown]
  - Weight increased [Unknown]
